FAERS Safety Report 15310736 (Version 1)
Quarter: 2018Q3

REPORT INFORMATION
  Report Type: Spontaneous
  Country: US (occurrence: US)
  Receive Date: 20180813
  Receipt Date: 20180813
  Transmission Date: 20181010
  Serious: Yes (Hospitalization)
  Sender: FDA-Public Use
  Company Number: None

PATIENT
  Sex: Male

DRUGS (22)
  1. TOPIRAMATE. [Concomitant]
     Active Substance: TOPIRAMATE
  2. BUPROPION. [Concomitant]
     Active Substance: BUPROPION
  3. MINOCYCLINE [Concomitant]
     Active Substance: MINOCYCLINE\MINOCYCLINE HYDROCHLORIDE
  4. WELLBUTRIN [Concomitant]
     Active Substance: BUPROPION HYDROCHLORIDE
  5. CYMBALTA [Concomitant]
     Active Substance: DULOXETINE HYDROCHLORIDE
  6. TRAZODONE [Concomitant]
     Active Substance: TRAZODONE HYDROCHLORIDE
  7. PREDNISONE. [Concomitant]
     Active Substance: PREDNISONE
  8. LORAZEPAM. [Concomitant]
     Active Substance: LORAZEPAM
  9. LIDODERM [Concomitant]
     Active Substance: LIDOCAINE
  10. AMPHETAMINE [Concomitant]
     Active Substance: AMPHETAMINE
  11. OXYCODONE/APAP [Concomitant]
     Active Substance: ACETAMINOPHEN\OXYCODONE HYDROCHLORIDE
  12. DEXAMETHASONE. [Concomitant]
     Active Substance: DEXAMETHASONE
  13. CLOBETASOL [Concomitant]
     Active Substance: CLOBETASOL
  14. FINASTERIDE. [Concomitant]
     Active Substance: FINASTERIDE
  15. VOLTAREN [Concomitant]
     Active Substance: DICLOFENAC SODIUM
  16. EPIDUO [Concomitant]
     Active Substance: ADAPALENE\BENZOYL PEROXIDE
  17. CHERATUSSIN [Concomitant]
     Active Substance: AMMONIUM CHLORIDE\DEXTROMETHORPHAN\SODIUM CITRATE
  18. TESTOST CYP [Concomitant]
     Active Substance: TESTOSTERONE CYPIONATE
  19. NUTROPIN AQ [Suspect]
     Active Substance: SOMATROPIN
     Indication: HYPOPITUITARISM
     Route: 058
     Dates: start: 20171006
  20. HYDROCODONE BITARTRATE AND ACETAMINOPHEN [Concomitant]
     Active Substance: ACETAMINOPHEN\HYDROCODONE BITARTRATE
  21. ARMOUR THYROID [Concomitant]
     Active Substance: THYROID, PORCINE
  22. CLINDAMYCIN. [Concomitant]
     Active Substance: CLINDAMYCIN

REACTIONS (1)
  - Surgery [None]
